FAERS Safety Report 7629081-9 (Version None)
Quarter: 2011Q3

REPORT INFORMATION
  Report Type: 
  Country: None (occurrence: None)
  Receive Date: 20110701
  Receipt Date: 20101022
  Transmission Date: 20111222
  Serious: Yes (Other)
  Sender: FDA-Public Use
  Company Number: 7024137

PATIENT
  Age: 37 Year
  Sex: Female

DRUGS (2)
  1. REBIF [Suspect]
     Indication: PRODUCT USED FOR UNKNOWN INDICATION
     Dosage: 22 MCG, 3 IN 1 WK, SUBCUTANEOUS
     Route: 058
     Dates: start: 20091023
  2. SYNTHROID [Concomitant]

REACTIONS (4)
  - HEAD TITUBATION [None]
  - HYPERTHYROIDISM [None]
  - PITUITARY TUMOUR BENIGN [None]
  - MUSCULOSKELETAL PAIN [None]
